FAERS Safety Report 12540328 (Version 1)
Quarter: 2016Q3

REPORT INFORMATION
  Report Type: Spontaneous
  Country: BE (occurrence: BE)
  Receive Date: 20160708
  Receipt Date: 20160708
  Transmission Date: 20161109
  Serious: Yes (Death, Other)
  Sender: FDA-Public Use
  Company Number: BE-CIPLA LTD.-2016BE08778

PATIENT

DRUGS (22)
  1. MESNA. [Suspect]
     Active Substance: MESNA
     Dosage: UNK ON DAYS 5 AND 3
     Route: 065
  2. ALLOPURINOL. [Concomitant]
     Active Substance: ALLOPURINOL
     Indication: PROPHYLAXIS
     Dosage: 100 MG, TID ON DAYS 8 TO 10
     Route: 065
  3. CISPLATIN. [Suspect]
     Active Substance: CISPLATIN
     Indication: MALIGNANT HYDATIDIFORM MOLE
     Dosage: 75 MG/M2, ON DAY 1
     Route: 042
  4. PREDNISOLONE. [Suspect]
     Active Substance: PREDNISOLONE
     Dosage: 30 MG, BID, ON DAYS 0-14
     Route: 065
  5. GLUCOSE [Concomitant]
     Active Substance: DEXTROSE
     Dosage: 1 LITRE
     Route: 042
  6. SODIUM BICARBONATE. [Concomitant]
     Active Substance: SODIUM BICARBONATE
     Indication: URINE ALKALINISATION THERAPY
     Dosage: 500 ML
     Route: 042
  7. FOLINIC ACID [Concomitant]
     Active Substance: LEUCOVORIN
     Indication: TOXICITY TO VARIOUS AGENTS
     Dosage: 7.5 MG
     Route: 065
  8. CARBOPLATIN. [Suspect]
     Active Substance: CARBOPLATIN
     Dosage: 4 AUCS PER WEEK ON DAY 1 AND DAY 8, EVERY 3 WEEKS) WAS GIVEN FOR 4 CYCLES
     Route: 065
  9. PACLITAXEL. [Suspect]
     Active Substance: PACLITAXEL
     Dosage: 90 MG/M2, WEEKLY
     Route: 065
  10. SOLU-MEDROL [Concomitant]
     Active Substance: METHYLPREDNISOLONE SODIUM SUCCINATE
     Indication: PROPHYLAXIS
     Dosage: 125 MG, UNK
     Route: 042
  11. ETOPOSIDE. [Suspect]
     Active Substance: ETOPOSIDE
     Indication: MALIGNANT HYDATIDIFORM MOLE
     Dosage: 150 MG/M2, ON DAY 1
     Route: 065
  12. ETOPOSIDE. [Suspect]
     Active Substance: ETOPOSIDE
     Dosage: 450 MG/M2 UNK
     Route: 065
  13. METHOTREXATE. [Suspect]
     Active Substance: METHOTREXATE
     Indication: MALIGNANT HYDATIDIFORM MOLE
     Dosage: 300 MG/M2, UNK
     Route: 042
  14. METHOTREXATE. [Suspect]
     Active Substance: METHOTREXATE
     Dosage: 1000 MG/M2,WEEKLY
     Route: 065
  15. ETOPOSIDE. [Suspect]
     Active Substance: ETOPOSIDE
     Dosage: 100 MG/M2, WEEKLY
     Route: 065
  16. ONDASETRON [Concomitant]
     Active Substance: ONDANSETRON
     Indication: ANTIEMETIC SUPPORTIVE CARE
     Dosage: 8 MG, UNK
     Route: 042
  17. CARBOPLATIN. [Suspect]
     Active Substance: CARBOPLATIN
     Indication: MALIGNANT HYDATIDIFORM MOLE
     Dosage: (AUC) 10 ON DAYS -7, -5, AND -3
     Route: 065
  18. CYCLOPHOSPHAMIDE. [Suspect]
     Active Substance: CYCLOPHOSPHAMIDE
     Indication: MALIGNANT HYDATIDIFORM MOLE
     Dosage: 60 MG/M2  ON DAYS 5 AND 3
     Route: 065
  19. DACTINOMYCIN [Suspect]
     Active Substance: DACTINOMYCIN
     Indication: MALIGNANT HYDATIDIFORM MOLE
     Dosage: 0.5 MG , ON DAY 8
     Route: 042
  20. MAGNESIUM SULPHATE [Concomitant]
     Active Substance: MAGNESIUM SULFATE
     Dosage: 3 G, UNK
     Route: 065
  21. PACLITAXEL. [Suspect]
     Active Substance: PACLITAXEL
     Indication: MALIGNANT HYDATIDIFORM MOLE
     Dosage: 75 MG/M2, UNK
     Route: 065
  22. ETOPOSIDE. [Suspect]
     Active Substance: ETOPOSIDE
     Dosage: 100 MG/M2, UNK
     Route: 065

REACTIONS (4)
  - Disease recurrence [Unknown]
  - Disease progression [Fatal]
  - Drug ineffective [Unknown]
  - Ototoxicity [Unknown]
